FAERS Safety Report 13088428 (Version 3)
Quarter: 2017Q1

REPORT INFORMATION
  Report Type: Spontaneous
  Country: BR (occurrence: BR)
  Receive Date: 20170105
  Receipt Date: 20170117
  Transmission Date: 20170428
  Serious: Yes (Death, Hospitalization)
  Sender: FDA-Public Use
  Company Number: BR-PFIZER INC-2016489374

PATIENT
  Age: 44 Year
  Sex: Male

DRUGS (1)
  1. SUTENT [Suspect]
     Active Substance: SUNITINIB MALATE
     Dosage: UNK
     Dates: start: 20161003, end: 20161016

REACTIONS (5)
  - Myalgia [Unknown]
  - Neoplasm progression [Fatal]
  - Walking disability [Unknown]
  - Multiple organ dysfunction syndrome [Fatal]
  - Pain in extremity [Unknown]

NARRATIVE: CASE EVENT DATE: 201610
